FAERS Safety Report 6675257-7 (Version None)
Quarter: 2010Q2

REPORT INFORMATION
  Report Type: 
  Country: None (occurrence: None)
  Receive Date: 20100409
  Receipt Date: 20091214
  Transmission Date: 20101027
  Serious: No
  Sender: FDA-Public Use
  Company Number: A0835623A

PATIENT
  Age: 48 Year
  Sex: Female

DRUGS (2)
  1. TYKERB [Suspect]
     Indication: DRUG USE FOR UNKNOWN INDICATION
     Route: 048
     Dates: start: 20091204
  2. XELODA [Suspect]
     Route: 065
     Dates: start: 20091204

REACTIONS (1)
  - DIARRHOEA [None]
